FAERS Safety Report 23460444 (Version 1)
Quarter: 2024Q1

REPORT INFORMATION
  Report Type: Spontaneous
  Country: NP (occurrence: NP)
  Receive Date: 20240131
  Receipt Date: 20240131
  Transmission Date: 20240409
  Serious: Yes (Death, Hospitalization, Congenital Anomaly, Other)
  Sender: FDA-Public Use
  Company Number: NP-CPL-003967

PATIENT
  Sex: Female
  Weight: 2.16 kg

DRUGS (1)
  1. FOLIC ACID [Suspect]
     Active Substance: FOLIC ACID
     Indication: Product used for unknown indication
     Route: 064

REACTIONS (4)
  - Cleft lip and palate [Fatal]
  - Cerebral haematoma [Fatal]
  - Neural tube defect [Fatal]
  - Foetal exposure during pregnancy [Unknown]
